FAERS Safety Report 14054165 (Version 2)
Quarter: 2018Q2

REPORT INFORMATION
  Report Type: Spontaneous
  Country: FR (occurrence: FR)
  Receive Date: 20171006
  Receipt Date: 20180502
  Transmission Date: 20180711
  Serious: Yes (Other)
  Sender: FDA-Public Use
  Company Number: FR-MERCK KGAA-2028994

PATIENT
  Age: 64 Year
  Sex: Male
  Weight: 130 kg

DRUGS (1)
  1. NOVOTHYROX [Suspect]
     Active Substance: LEVOTHYROXINE SODIUM
     Indication: THYROID DISORDER
     Route: 048

REACTIONS (3)
  - Irritability [Unknown]
  - Anxiety [Unknown]
  - Product formulation issue [Unknown]

NARRATIVE: CASE EVENT DATE: 2017
